FAERS Safety Report 15238058 (Version 1)
Quarter: 2018Q3

REPORT INFORMATION
  Report Type: Spontaneous
  Country: US (occurrence: US)
  Receive Date: 20180803
  Receipt Date: 20180803
  Transmission Date: 20181010
  Serious: Yes (Hospitalization, Other)
  Sender: FDA-Public Use
  Company Number: US-PFIZER INC-2018313008

PATIENT
  Age: 77 Year
  Sex: Female
  Weight: 61 kg

DRUGS (1)
  1. LYRICA [Suspect]
     Active Substance: PREGABALIN
     Indication: DIABETIC NEUROPATHY
     Dosage: 150 MG, DAILY (50MG CAPSULES, ONE CAPSULE IN THE MORNING AND TWO CAPSULES AT NIGHT)
     Dates: start: 1995, end: 201704

REACTIONS (8)
  - Spinal fracture [Unknown]
  - Fall [Recovering/Resolving]
  - Pain [Unknown]
  - Femur fracture [Recovered/Resolved with Sequelae]
  - Ligament sprain [Recovering/Resolving]
  - Hip fracture [Recovered/Resolved with Sequelae]
  - Viral infection [Recovered/Resolved]
  - Body height decreased [Unknown]

NARRATIVE: CASE EVENT DATE: 201704
